FAERS Safety Report 13750783 (Version 3)
Quarter: 2018Q3

REPORT INFORMATION
  Report Type: Spontaneous
  Country: JP (occurrence: JP)
  Receive Date: 20170713
  Receipt Date: 20180808
  Transmission Date: 20181010
  Serious: Yes (Other)
  Sender: FDA-Public Use
  Company Number: JP-009507513-1707JPN000205J

PATIENT

DRUGS (1)
  1. ESLAX INTRAVENOUS 25MG/2.5ML [Suspect]
     Active Substance: ROCURONIUM BROMIDE
     Indication: NEUROMUSCULAR BLOCKING THERAPY
     Dosage: UNK
     Route: 042
     Dates: start: 201706, end: 201706

REACTIONS (2)
  - Overdose [Unknown]
  - Neonatal hypotension [Recovered/Resolved]

NARRATIVE: CASE EVENT DATE: 201706
